FAERS Safety Report 7563218-5 (Version None)
Quarter: 2011Q2

REPORT INFORMATION
  Report Type: 
  Country: None (occurrence: None)
  Receive Date: 20110615
  Receipt Date: 20110609
  Transmission Date: 20111010
  Serious: Yes (Life-Threatening, Hospitalization)
  Sender: FDA-Public Use
  Company Number: 2011SP027037

PATIENT
  Sex: Female

DRUGS (1)
  1. NUVARING [Suspect]
     Indication: CONTRACEPTION
     Dosage: 1 DF

REACTIONS (4)
  - TWIN PREGNANCY [None]
  - ABORTION SPONTANEOUS [None]
  - PULMONARY EMBOLISM [None]
  - PREGNANCY WITH CONTRACEPTIVE DEVICE [None]
